FAERS Safety Report 18464370 (Version 1)
Quarter: 2020Q4

REPORT INFORMATION
  Report Type: Spontaneous
  Country: GB (occurrence: GB)
  Receive Date: 20201104
  Receipt Date: 20201104
  Transmission Date: 20210114
  Serious: Yes (Other)
  Sender: FDA-Public Use
  Company Number: GB-MYLANLABS-2020M1091516

PATIENT
  Age: 79 Year
  Sex: Male
  Weight: 122 kg

DRUGS (32)
  1. RANITIDINE. [Suspect]
     Active Substance: RANITIDINE
     Indication: GASTROOESOPHAGEAL REFLUX DISEASE
     Dosage: 150 UNK
     Dates: start: 20201002, end: 20201005
  2. CODEINE PHOSPHATE [Concomitant]
     Active Substance: CODEINE PHOSPHATE
     Dosage: 1-2
     Dates: start: 20200930
  3. MACROGOL [Concomitant]
     Active Substance: POLYETHYLENE GLYCOLS
     Dosage: 1-2 SACHET
     Dates: start: 20201005
  4. AMITRIPTYLINE HYDROCHLORIDE. [Concomitant]
     Active Substance: AMITRIPTYLINE HYDROCHLORIDE
     Dosage: 3 DOSAGE FORM
     Dates: start: 20200930
  5. FUROSEMIDE. [Concomitant]
     Active Substance: FUROSEMIDE
     Dosage: VARIABLE DOSE
     Dates: start: 20200930
  6. RABEPRAZOLE [Concomitant]
     Active Substance: RABEPRAZOLE
     Dosage: UNK
     Dates: start: 20201005
  7. POTASSIUM CHLORIDE. [Concomitant]
     Active Substance: POTASSIUM CHLORIDE
     Dosage: UNK
     Dates: start: 20201001
  8. AMOXICILLIN. [Concomitant]
     Active Substance: AMOXICILLIN
     Dosage: 500 MILLIGRAM
     Dates: start: 20200930, end: 20200930
  9. PREDNISOLONE. [Concomitant]
     Active Substance: PREDNISOLONE
     Dosage: 6 DOSAGE FORM
     Dates: start: 20200930
  10. ACIDEX                             /01521901/ [Concomitant]
     Active Substance: CALCIUM CARBONATE\SODIUM ALGINATE\SODIUM BICARBONATE
     Dosage: 10 MILLILITER
     Dates: start: 20201003
  11. APIXABAN [Concomitant]
     Active Substance: APIXABAN
     Dosage: 1 DOSAGE FORM
     Dates: start: 20200930
  12. ATORVASTATIN [Concomitant]
     Active Substance: ATORVASTATIN
     Dosage: 1 DOSAGE FORM
     Dates: start: 20200930
  13. PHENOXYMETHYLPENICILLIN [Concomitant]
     Active Substance: PENICILLIN V
     Dosage: UNK
     Dates: start: 20201005
  14. PREGABALIN. [Concomitant]
     Active Substance: PREGABALIN
     Dosage: VARIABLE DOSE
     Dates: start: 20200930
  15. NOVOMIX [Concomitant]
     Active Substance: INSULIN ASPART
     Dosage: 46 INTERNATIONAL UNIT
     Dates: start: 20201003
  16. SODIUM LACTATE. [Concomitant]
     Active Substance: SODIUM LACTATE
     Dosage: UNK
     Dates: start: 20200930
  17. MEROPENEM. [Concomitant]
     Active Substance: MEROPENEM
     Dosage: 500 MILLIGRAM
     Dates: start: 20201001
  18. OXYGEN. [Concomitant]
     Active Substance: OXYGEN
     Dosage: CONTINUOUS 1-10 LITRES/MINUTE
     Dates: start: 20201002
  19. ZEROBASE                           /00103901/ [Concomitant]
     Dosage: 1 APPLICATION(S) UNCHECKED UNITS
     Dates: start: 20201003
  20. PIPERACILLIN. [Concomitant]
     Active Substance: PIPERACILLIN SODIUM
     Dosage: 4.5 GRAM
     Dates: start: 20200930, end: 20201001
  21. BISOPROLOL [Concomitant]
     Active Substance: BISOPROLOL
     Dosage: 1 DOSAGE FORM
     Dates: start: 20200930
  22. SALBUTAMOL [Concomitant]
     Active Substance: ALBUTEROL
     Dosage: 5 MILLIGRAM
     Dates: start: 20200930
  23. FINASTERIDE. [Concomitant]
     Active Substance: FINASTERIDE
     Dosage: 1 DOSAGE FORM
     Dates: start: 20200930
  24. CYCLIZINE [Concomitant]
     Active Substance: CYCLIZINE
     Dosage: 50 MILLIGRAM
     Dates: start: 20200930, end: 20201005
  25. GLYCERYL TRINITRATE [Concomitant]
     Active Substance: NITROGLYCERIN
     Dosage: 1-2 SPRAY
     Dates: start: 20200930
  26. PARACETAMOL [Concomitant]
     Active Substance: ACETAMINOPHEN
     Dosage: 1-2
     Dates: start: 20200930
  27. SODIUM CHLORIDE. [Concomitant]
     Active Substance: SODIUM CHLORIDE
     Dosage: 5 MILLILITER
     Dates: start: 20200930
  28. TAMSULOSIN HYDROCHLORIDE. [Concomitant]
     Active Substance: TAMSULOSIN HYDROCHLORIDE
     Dosage: 1 DOSAGE FORM
     Dates: start: 20200930
  29. ALFACALCIDOL [Concomitant]
     Active Substance: ALFACALCIDOL
     Dosage: 1 DOSAGE FORM
     Dates: start: 20201006
  30. HYDROXOCOBALAMIN [Concomitant]
     Active Substance: HYDROXOCOBALAMIN
     Dosage: 1 MILLIGRAM
     Dates: start: 20200930, end: 20200930
  31. ISOSORBIDE MONONITRATE. [Concomitant]
     Active Substance: ISOSORBIDE MONONITRATE
     Dosage: 1 DOSAGE FORM
     Dates: start: 20201006
  32. GLUCOSE [Concomitant]
     Active Substance: DEXTROSE
     Dosage: UNK
     Dates: start: 20201001

REACTIONS (2)
  - Hallucination, visual [Recovered/Resolved]
  - Delirium [Recovered/Resolved]

NARRATIVE: CASE EVENT DATE: 20201006
